FAERS Safety Report 14229789 (Version 1)
Quarter: 2017Q4

REPORT INFORMATION
  Report Type: Spontaneous
  Country: US (occurrence: None)
  Receive Date: 20171128
  Receipt Date: 20171128
  Transmission Date: 20180321
  Serious: Yes (Other)
  Sender: FDA-Public Use
  Company Number: None

PATIENT
  Age: 66 Year
  Sex: Female
  Weight: 53.52 kg

DRUGS (2)
  1. VITAMIN C [Concomitant]
     Active Substance: ASCORBIC ACID
  2. PAROEX [Suspect]
     Active Substance: CHLORHEXIDINE GLUCONATE
     Indication: PERIODONTAL DISEASE
     Dosage: .12%, DOSAGE CUP 15 ML, TWICE DAILY, SWISH IN MOUTH THEN SPIT OUT
     Dates: start: 20171026, end: 20171028

REACTIONS (2)
  - Dysgeusia [None]
  - Tooth discolouration [None]

NARRATIVE: CASE EVENT DATE: 20171026
